FAERS Safety Report 11687968 (Version 1)
Quarter: 2015Q4

REPORT INFORMATION
  Report Type: Spontaneous
  Country: US (occurrence: US)
  Receive Date: 20151030
  Receipt Date: 20151030
  Transmission Date: 20160304
  Serious: Yes (Death)
  Sender: FDA-Public Use
  Company Number: US-PFIZER INC-2015365914

PATIENT
  Age: 50 Year
  Sex: Female
  Weight: 134 kg

DRUGS (1)
  1. PREMARIN [Suspect]
     Active Substance: ESTROGENS, CONJUGATED
     Indication: VAGINAL INFECTION
     Dosage: 0.625 MG, 2X/DAY
     Dates: start: 201505

REACTIONS (2)
  - Lung disorder [Fatal]
  - Product use issue [Unknown]
